FAERS Safety Report 23635570 (Version 1)
Quarter: 2024Q1

REPORT INFORMATION
  Report Type: Spontaneous
  Country: US (occurrence: US)
  Receive Date: 20240315
  Receipt Date: 20240315
  Transmission Date: 20240410
  Serious: No
  Sender: FDA-Public Use
  Company Number: US-TEYRO-2024-TY-000014

PATIENT
  Age: 55 Year
  Sex: Male

DRUGS (5)
  1. CARBOPLATIN [Suspect]
     Active Substance: CARBOPLATIN
     Indication: HER2 positive salivary gland cancer
     Dosage: SIX CYCLES
     Route: 065
  2. DOCETAXEL [Concomitant]
     Active Substance: DOCETAXEL\DOCETAXEL ANHYDROUS
     Dosage: ONE CYCLE
     Route: 065
  3. DOCETAXEL [Concomitant]
     Active Substance: DOCETAXEL\DOCETAXEL ANHYDROUS
     Dosage: SIX CYCLES
     Route: 065
  4. TRASTUZUMAB [Concomitant]
     Active Substance: TRASTUZUMAB
     Dosage: SIX CYCLES
     Route: 065
  5. CISPLATIN [Concomitant]
     Active Substance: CISPLATIN
     Dosage: ONE CYCLE
     Route: 065

REACTIONS (1)
  - Off label use [Unknown]
